FAERS Safety Report 6736690-8 (Version None)
Quarter: 2010Q2

REPORT INFORMATION
  Report Type: 
  Country: None (occurrence: None)
  Receive Date: 20100521
  Receipt Date: 20100510
  Transmission Date: 20101027
  Serious: Yes (Other)
  Sender: FDA-Public Use
  Company Number: PHEH2010US03043

PATIENT
  Sex: Female

DRUGS (8)
  1. ZOMETA [Suspect]
     Dosage: 4MG FOR 4 WEEKS
     Route: 042
     Dates: start: 20090727, end: 20100222
  2. ZOMETA [Suspect]
     Dosage: 2.5 MG, QD
     Route: 048
     Dates: start: 20091101
  3. ZOMETA [Suspect]
     Dosage: 10 MG, QW3
  4. FEMARA [Suspect]
     Indication: BREAST CANCER
     Dosage: 2.5 MG, QD
     Route: 048
     Dates: start: 20091101
  5. XELODA [Suspect]
  6. TAXOTERE [Suspect]
  7. CHEMOTHERAPEUTICS NOS [Concomitant]
  8. AMLODIPINE [Concomitant]

REACTIONS (7)
  - BLOOD PRESSURE INCREASED [None]
  - ESSENTIAL HYPERTENSION [None]
  - HOT FLUSH [None]
  - MASTECTOMY [None]
  - NIGHT SWEATS [None]
  - SURGERY [None]
  - VOMITING [None]
